FAERS Safety Report 5376237-4 (Version None)
Quarter: 2007Q3

REPORT INFORMATION
  Report Type: 
  Country: None (occurrence: None)
  Receive Date: 20070702
  Receipt Date: 20070622
  Transmission Date: 20080115
  Serious: Yes (Hospitalization)
  Sender: FDA-Public Use
  Company Number: DE-ASTRAZENECA-2007PK01282

PATIENT
  Age: 52 Year
  Sex: Male

DRUGS (10)
  1. SEROQUEL [Suspect]
     Route: 048
     Dates: start: 20070215, end: 20070215
  2. SEROQUEL [Suspect]
     Route: 048
     Dates: start: 20070216, end: 20070216
  3. SEROQUEL [Suspect]
     Route: 048
     Dates: start: 20070217, end: 20070217
  4. SEROQUEL [Suspect]
     Route: 048
     Dates: start: 20070218, end: 20070219
  5. SEROQUEL [Suspect]
     Route: 048
     Dates: start: 20070220, end: 20070221
  6. NORVASC [Interacting]
     Route: 048
     Dates: start: 20070215, end: 20070217
  7. RAMIPRIL [Interacting]
     Route: 048
     Dates: start: 20060201
  8. LORAZEPAM [Concomitant]
     Route: 048
     Dates: start: 20070215, end: 20070217
  9. LORAZEPAM [Concomitant]
     Route: 048
     Dates: start: 20070218
  10. PANTOZOL [Concomitant]
     Route: 048
     Dates: start: 20070218

REACTIONS (3)
  - ATRIAL FIBRILLATION [None]
  - ATRIAL FLUTTER [None]
  - TACHYARRHYTHMIA [None]
